FAERS Safety Report 15984426 (Version 4)
Quarter: 2019Q2

REPORT INFORMATION
  Report Type: Spontaneous
  Country: JP (occurrence: JP)
  Receive Date: 20190220
  Receipt Date: 20190502
  Transmission Date: 20190711
  Serious: Yes (Hospitalization, Other)
  Sender: FDA-Public Use
  Company Number: JP-ASTRAZENECA-2018SF56176

PATIENT
  Age: 48 Year
  Sex: Male
  Weight: 53 kg

DRUGS (7)
  1. BELSOMRA [Concomitant]
     Active Substance: SUVOREXANT
     Indication: INSOMNIA
     Route: 048
     Dates: start: 20181019
  2. IMFINZI [Suspect]
     Active Substance: DURVALUMAB
     Indication: NON-SMALL CELL LUNG CANCER
     Route: 041
     Dates: start: 20181121, end: 20181219
  3. ROZEREM [Concomitant]
     Active Substance: RAMELTEON
     Indication: INSOMNIA
     Route: 048
     Dates: start: 20181019
  4. ALLOID G [Concomitant]
     Active Substance: SODIUM ALGINATE
     Indication: RADIATION OESOPHAGITIS
     Route: 048
     Dates: start: 20181029, end: 20190109
  5. BROTIZOLAM [Concomitant]
     Active Substance: BROTIZOLAM
     Indication: INSOMNIA
     Route: 048
     Dates: start: 20181022
  6. DEPAKENE [Concomitant]
     Active Substance: VALPROIC ACID
     Dosage: DOSE UNKNOWN
     Route: 065
  7. PANVITAN [Concomitant]
     Dosage: DOSE UNKNOWN
     Route: 065

REACTIONS (2)
  - Lung disorder [Recovering/Resolving]
  - Metastases to central nervous system [Unknown]

NARRATIVE: CASE EVENT DATE: 20190109
